FAERS Safety Report 6994534-3 (Version None)
Quarter: 2010Q3

REPORT INFORMATION
  Report Type: 
  Country: None (occurrence: None)
  Receive Date: 20100917
  Receipt Date: 20100910
  Transmission Date: 20110219
  Serious: Yes (Hospitalization, Other)
  Sender: FDA-Public Use
  Company Number: GB-AMGEN-QUU429421

PATIENT
  Sex: Female
  Weight: 63 kg

DRUGS (13)
  1. NEULASTA [Suspect]
     Indication: CHEMOTHERAPY
     Route: 058
     Dates: start: 20100721
  2. FLUOROURACIL [Concomitant]
     Dates: start: 20100720
  3. EPIRUBICIN [Concomitant]
     Dates: start: 20100720
  4. CYCLOPHOSPHAMIDE [Concomitant]
     Dates: start: 20100720
  5. METFORMIN [Concomitant]
  6. GLUCOSAMINE [Concomitant]
  7. PIRITON [Concomitant]
  8. FEXOFENADINE HCL [Concomitant]
  9. ONDANSETRON [Concomitant]
     Route: 048
     Dates: start: 20100720, end: 20100722
  10. DEXAMETHASONE [Concomitant]
     Route: 048
     Dates: start: 20100721, end: 20100721
  11. METOCLOPRAMIDE [Concomitant]
     Route: 048
  12. APREPITANT [Concomitant]
     Dates: start: 20100720, end: 20100722
  13. DOCETAXEL [Concomitant]

REACTIONS (7)
  - ABDOMINAL PAIN [None]
  - FEBRILE NEUTROPENIA [None]
  - LETHARGY [None]
  - MYALGIA [None]
  - NAUSEA [None]
  - NEUTROPENIC SEPSIS [None]
  - PYREXIA [None]
